FAERS Safety Report 9319999 (Version 2)
Quarter: 2013Q2

REPORT INFORMATION
  Report Type: Spontaneous
  Country: AU (occurrence: AU)
  Receive Date: 20130530
  Receipt Date: 20130619
  Transmission Date: 20140414
  Serious: Yes (Hospitalization)
  Sender: FDA-Public Use
  Company Number: AU-ELI_LILLY_AND_COMPANY-AU201305006465

PATIENT
  Age: 76 Year
  Sex: Female

DRUGS (1)
  1. FORTEO [Suspect]
     Indication: OSTEOPOROSIS
     Dosage: UNK, QD
     Dates: start: 20130416

REACTIONS (5)
  - Gastroenteritis [Recovered/Resolved]
  - Asthenia [Recovering/Resolving]
  - Dehydration [Unknown]
  - Rib fracture [Unknown]
  - Stress fracture [Unknown]
